FAERS Safety Report 7444308-4 (Version None)
Quarter: 2011Q2

REPORT INFORMATION
  Report Type: 
  Country: None (occurrence: None)
  Receive Date: 20110429
  Receipt Date: 20110421
  Transmission Date: 20111010
  Serious: Yes (Other)
  Sender: FDA-Public Use
  Company Number: US-JNJFOC-20110303581

PATIENT
  Sex: Female

DRUGS (4)
  1. LEVAQUIN [Suspect]
     Indication: SINUSITIS
     Route: 048
  2. LEVAQUIN [Suspect]
     Indication: BRONCHITIS
     Route: 048
  3. LEVAQUIN [Suspect]
     Route: 048
  4. LEVAQUIN [Suspect]
     Indication: BRONCHOSPASM
     Route: 048

REACTIONS (5)
  - MUSCLE STRAIN [None]
  - BURSITIS [None]
  - OSTEOARTHRITIS [None]
  - TENDON DISORDER [None]
  - ROTATOR CUFF SYNDROME [None]
